FAERS Safety Report 16042470 (Version 1)
Quarter: 2019Q2

REPORT INFORMATION
  Report Type: Spontaneous
  Country: US (occurrence: US)
  Receive Date: 20190306
  Receipt Date: 20190306
  Transmission Date: 20190711
  Serious: Yes (Hospitalization)
  Sender: FDA-Public Use
  Company Number: None

PATIENT
  Sex: Male

DRUGS (10)
  1. PROCHLORPER [Concomitant]
  2. LEVOFLOXACIN. [Concomitant]
     Active Substance: LEVOFLOXACIN
  3. MESNA. [Concomitant]
     Active Substance: MESNA
  4. SPRYCEL [Suspect]
     Active Substance: DASATINIB
     Indication: ACUTE LYMPHOCYTIC LEUKAEMIA
     Route: 048
     Dates: start: 20180731
  5. CYCLOPHOSPH [Concomitant]
  6. DOXORUBICIN [Concomitant]
     Active Substance: DOXORUBICIN
  7. OXYTOCIN. [Concomitant]
     Active Substance: OXYTOCIN
  8. ZOFRAN [Concomitant]
     Active Substance: ONDANSETRON HYDROCHLORIDE
  9. VINCRISTINE [Concomitant]
     Active Substance: VINCRISTINE
  10. DEXAMETHASON [Concomitant]
     Active Substance: DEXAMETHASONE

REACTIONS (1)
  - Stem cell transplant [None]
